FAERS Safety Report 5375930-7 (Version None)
Quarter: 2007Q2

REPORT INFORMATION
  Report Type: 
  Country: None (occurrence: None)
  Receive Date: 20070627
  Receipt Date: 20070627
  Transmission Date: 20071010
  Serious: Yes (Life-Threatening, Hospitalization)
  Sender: FDA-Public Use
  Company Number: None

PATIENT
  Age: 67 Year
  Sex: Female
  Weight: 74.8435 kg

DRUGS (7)
  1. ENALAPRIL MALEATE 20 MG [Suspect]
     Indication: HYPERTENSION
     Dosage: 20 MG DAILY PO NO ^RECENT^ DOSE CHANGE
     Route: 048
  2. LEVOTHYROXINE SODIUM [Concomitant]
  3. SERTRALINE [Concomitant]
  4. CADUET [Concomitant]
  5. OMEPRAZOLE [Concomitant]
  6. NIFEREX [Concomitant]
  7. METFORMIN HCL [Concomitant]

REACTIONS (7)
  - DROOLING [None]
  - DYSPNOEA [None]
  - ERYTHEMA [None]
  - LOCAL SWELLING [None]
  - PHARYNGOLARYNGEAL PAIN [None]
  - SWOLLEN TONGUE [None]
  - THERAPEUTIC RESPONSE DECREASED [None]
